FAERS Safety Report 7110252-5 (Version None)
Quarter: 2010Q4

REPORT INFORMATION
  Report Type: 
  Country: None (occurrence: None)
  Receive Date: 20101117
  Receipt Date: 20101117
  Transmission Date: 20110411
  Serious: Yes (Hospitalization)
  Sender: FDA-Public Use
  Company Number: None

PATIENT
  Age: 67 Year
  Sex: Female
  Weight: 65.7716 kg

DRUGS (2)
  1. BONIVA [Suspect]
     Indication: BONE DISORDER
     Dosage: 1 PILL A MONTH 1 TIME A MONTH
     Dates: end: 20100801
  2. BONIVA [Suspect]
     Indication: OSTEOPOROSIS
     Dosage: 1 PILL A MONTH 1 TIME A MONTH
     Dates: end: 20100801

REACTIONS (3)
  - FALL [None]
  - FEMUR FRACTURE [None]
  - HIP FRACTURE [None]
